FAERS Safety Report 19416122 (Version 1)
Quarter: 2021Q2

REPORT INFORMATION
  Report Type: Spontaneous
  Country: US (occurrence: US)
  Receive Date: 20210615
  Receipt Date: 20210615
  Transmission Date: 20210717
  Serious: No
  Sender: FDA-Public Use
  Company Number: US-ALLERGAN-2039638US

PATIENT
  Sex: Female

DRUGS (5)
  1. KYBELLA [Suspect]
     Active Substance: DEOXYCHOLIC ACID
     Dosage: 4 ML, SINGLE
     Dates: start: 20200511, end: 20200511
  2. TRISANT [Concomitant]
     Dosage: 150 MG, QD
  3. KYBELLA [Suspect]
     Active Substance: DEOXYCHOLIC ACID
     Dosage: 4 ML, SINGLE
     Dates: start: 20200622, end: 20200622
  4. KYBELLA [Suspect]
     Active Substance: DEOXYCHOLIC ACID
     Indication: LIPOLYSIS PROCEDURE
     Dosage: 4 ML, SINGLE
     Dates: start: 20200928, end: 20200928
  5. KYBELLA [Suspect]
     Active Substance: DEOXYCHOLIC ACID
     Dosage: 4 ML, SINGLE
     Dates: start: 20200313, end: 20200313

REACTIONS (1)
  - Drug ineffective [Unknown]
